FAERS Safety Report 4735068-6 (Version None)
Quarter: 2005Q3

REPORT INFORMATION
  Report Type: 
  Country: None (occurrence: None)
  Receive Date: 20050804
  Receipt Date: 20050720
  Transmission Date: 20060218
  Serious: Yes (Death)
  Sender: FDA-Public Use
  Company Number: USA050597388

PATIENT
  Sex: Female

DRUGS (3)
  1. OLANZAPINE [Suspect]
     Indication: AGITATION
  2. OLANZAPINE [Suspect]
     Indication: IRRITABILITY
  3. CARDIAC/BLOOD PRESSURE MEDICATION [Concomitant]

REACTIONS (1)
  - CONFUSIONAL STATE [None]
